FAERS Safety Report 19349536 (Version 1)
Quarter: 2021Q2

REPORT INFORMATION
  Report Type: Report from Study
  Country: KR (occurrence: KR)
  Receive Date: 20210531
  Receipt Date: 20210531
  Transmission Date: 20210717
  Serious: Yes (Hospitalization, Other)
  Sender: FDA-Public Use
  Company Number: KR-AMGEN-KORCT2021082585

PATIENT
  Age: 47 Year
  Sex: Male

DRUGS (7)
  1. FILGRASTIM [Suspect]
     Active Substance: FILGRASTIM
     Dosage: UNK, QD
     Route: 065
     Dates: start: 20140512, end: 20140512
  2. FILGRASTIM [Suspect]
     Active Substance: FILGRASTIM
     Dosage: UNK, QD
     Route: 065
     Dates: start: 20140602, end: 20140602
  3. FILGRASTIM [Suspect]
     Active Substance: FILGRASTIM
     Dosage: UNK, QD
     Route: 065
     Dates: start: 20140609, end: 20140609
  4. FILGRASTIM [Suspect]
     Active Substance: FILGRASTIM
     Dosage: UNK, QD
     Route: 065
     Dates: start: 20140625, end: 20150703
  5. FILGRASTIM [Suspect]
     Active Substance: FILGRASTIM
     Indication: PRODUCT USED FOR UNKNOWN INDICATION
     Dosage: UNK, QD
     Route: 065
     Dates: start: 20100401, end: 20100406
  6. FILGRASTIM [Suspect]
     Active Substance: FILGRASTIM
     Dosage: UNK, QD
     Route: 065
     Dates: start: 20140514, end: 20140514
  7. FILGRASTIM [Suspect]
     Active Substance: FILGRASTIM
     Dosage: UNK, QD
     Route: 065
     Dates: start: 20140528, end: 20140530

REACTIONS (2)
  - Proctalgia [Recovered/Resolved]
  - Peritoneal tuberculosis [Recovered/Resolved]

NARRATIVE: CASE EVENT DATE: 20140331
